FAERS Safety Report 4660200-2 (Version None)
Quarter: 2005Q2

REPORT INFORMATION
  Report Type: 
  Country: None (occurrence: None)
  Receive Date: 20050505
  Receipt Date: 20050107
  Transmission Date: 20051028
  Serious: No
  Sender: FDA-Public Use
  Company Number: 2005USFACT00222

PATIENT
  Age: 29 Year
  Sex: Male
  Weight: 88.4 kg

DRUGS (4)
  1. FACTIVE [Suspect]
     Indication: RESPIRATORY TRACT INFECTION BACTERIAL
     Dosage: 320.00 MG, ORAL
     Route: 048
     Dates: start: 20041230, end: 20050106
  2. ADVAIR (FLUTICASONE PROPIONATE, SALMETEROL XINAFOATE) [Concomitant]
  3. CLARINEX [Concomitant]
  4. PNEUMOTUSSIN HC (GUAIFENESIN, HYDROCODONE BITARTRATE) [Concomitant]

REACTIONS (3)
  - ARTHRALGIA [None]
  - PYREXIA [None]
  - RASH GENERALISED [None]
